FAERS Safety Report 8210642-3 (Version None)
Quarter: 2012Q1

REPORT INFORMATION
  Report Type: 
  Country: None (occurrence: None)
  Receive Date: 20120314
  Receipt Date: 20120312
  Transmission Date: 20120608
  Serious: Yes (Hospitalization)
  Sender: FDA-Public Use
  Company Number: US-MERCK-1109USA01766

PATIENT
  Age: 59 Year
  Sex: Female

DRUGS (12)
  1. FOSAMAX [Suspect]
     Route: 048
     Dates: start: 20030101, end: 20060801
  2. ACTONEL [Suspect]
     Route: 048
     Dates: start: 20020701, end: 20030101
  3. CALCIUM (UNSPECIFIED) [Concomitant]
     Indication: OSTEOPENIA
     Route: 065
     Dates: start: 20000101
  4. HORMONES (UNSPECIFIED) [Concomitant]
     Route: 065
     Dates: start: 20000601, end: 20020701
  5. FOSAMAX [Suspect]
     Indication: OSTEOPENIA
     Route: 048
     Dates: start: 20000701, end: 20010501
  6. FOSAMAX [Suspect]
     Route: 048
  7. ACTONEL [Suspect]
     Indication: OSTEOPENIA
     Route: 048
     Dates: start: 20020501, end: 20020701
  8. OMEGA-3 MARINE TRIGLYCERIDES [Concomitant]
     Route: 065
     Dates: start: 20000101
  9. VITAMIN D (UNSPECIFIED) [Concomitant]
     Indication: OSTEOPENIA
     Route: 065
     Dates: start: 20000101
  10. FOSAMAX [Suspect]
     Route: 048
     Dates: start: 20010601, end: 20020401
  11. ACTONEL [Suspect]
     Route: 048
     Dates: start: 20070601, end: 20071001
  12. VITAMINS (UNSPECIFIED) [Concomitant]
     Route: 065
     Dates: start: 20000101

REACTIONS (7)
  - STRESS FRACTURE [None]
  - DEEP VEIN THROMBOSIS [None]
  - LOW TURNOVER OSTEOPATHY [None]
  - HYPERTENSION [None]
  - ROSACEA [None]
  - FEMUR FRACTURE [None]
  - FALL [None]
